FAERS Safety Report 7441007-X (Version None)
Quarter: 2011Q2

REPORT INFORMATION
  Report Type: 
  Country: None (occurrence: None)
  Receive Date: 20110427
  Receipt Date: 20090608
  Transmission Date: 20111010
  Serious: Yes (Other)
  Sender: FDA-Public Use
  Company Number: DE-GENENTECH-317527

PATIENT
  Age: 83 Year

DRUGS (1)
  1. LUCENTIS [Suspect]
     Indication: MACULAR DEGENERATION
     Dosage: UNK
     Route: 031
     Dates: start: 20090422

REACTIONS (7)
  - VISION BLURRED [None]
  - VISUAL ACUITY REDUCED [None]
  - CARDIOVASCULAR DISORDER [None]
  - FALL [None]
  - CHOROIDAL NEOVASCULARISATION [None]
  - UPPER LIMB FRACTURE [None]
  - FEMUR FRACTURE [None]
